FAERS Safety Report 8225119-9 (Version None)
Quarter: 2012Q1

REPORT INFORMATION
  Report Type: 
  Country: None (occurrence: None)
  Receive Date: 20120321
  Receipt Date: 20120309
  Transmission Date: 20120608
  Serious: Yes (Hospitalization, Congenital Anomaly, Other)
  Sender: FDA-Public Use
  Company Number: FR-JNJFOC-20120308813

PATIENT
  Sex: Male
  Weight: 2.25 kg

DRUGS (3)
  1. ACETAMINOPHEN AND TRAMADOL HCL [Suspect]
     Indication: FOETAL EXPOSURE DURING PREGNANCY
     Route: 064
     Dates: start: 20100727, end: 20110318
  2. ALL OTHER THERAPEUTIC PRODUCTS [Suspect]
     Indication: FOETAL EXPOSURE DURING PREGNANCY
     Route: 064
  3. VALPROATE SODIUM [Suspect]
     Indication: FOETAL EXPOSURE DURING PREGNANCY
     Route: 064

REACTIONS (4)
  - PILONIDAL CYST CONGENITAL [None]
  - DYSMORPHISM [None]
  - FOETAL EXPOSURE DURING PREGNANCY [None]
  - WITHDRAWAL SYNDROME [None]
